FAERS Safety Report 19212297 (Version 1)
Quarter: 2021Q2

REPORT INFORMATION
  Report Type: Spontaneous
  Country: US (occurrence: US)
  Receive Date: 20210504
  Receipt Date: 20210504
  Transmission Date: 20210717
  Serious: No
  Sender: FDA-Public Use
  Company Number: US-UNITED THERAPEUTICS-UNT-2021-005158

PATIENT
  Age: 70 Year
  Sex: Female

DRUGS (3)
  1. REMODULIN [Suspect]
     Active Substance: TREPROSTINIL
     Dosage: 0.04 ?G/KG, CONTINUING
     Route: 058
  2. REMODULIN [Suspect]
     Active Substance: TREPROSTINIL
     Indication: PULMONARY ARTERIAL HYPERTENSION
     Dosage: UNK, CONTINUING
     Route: 058
     Dates: start: 20201201
  3. MACITENTAN [Concomitant]
     Active Substance: MACITENTAN
     Indication: PULMONARY ARTERIAL HYPERTENSION
     Dosage: 10 MG (1 IN 1 DAY)
     Route: 048
     Dates: start: 20200122

REACTIONS (4)
  - Incorrect dose administered by device [Unknown]
  - Infusion site erythema [Unknown]
  - Infusion site pain [Unknown]
  - Infusion site reaction [Unknown]

NARRATIVE: CASE EVENT DATE: 20210320
